FAERS Safety Report 14940733 (Version 1)
Quarter: 2018Q2

REPORT INFORMATION
  Report Type: Spontaneous
  Country: US (occurrence: US)
  Receive Date: 20180525
  Receipt Date: 20180525
  Transmission Date: 20180711
  Serious: No
  Sender: FDA-Public Use
  Company Number: US-BAUSCH-BL-2018-004959

PATIENT
  Age: 58 Year
  Sex: Male

DRUGS (2)
  1. COMBIGAN [Concomitant]
     Active Substance: BRIMONIDINE TARTRATE\TIMOLOL MALEATE
     Indication: GLAUCOMA
     Dosage: ONE DROP IN EACH EYE
  2. VYZULTA [Suspect]
     Active Substance: LATANOPROSTENE BUNOD
     Indication: GLAUCOMA
     Dosage: AT BED TIME
     Route: 065
     Dates: start: 201801

REACTIONS (2)
  - Burning sensation [Recovered/Resolved]
  - Erythema [Recovered/Resolved]

NARRATIVE: CASE EVENT DATE: 201801
